FAERS Safety Report 21488955 (Version 1)
Quarter: 2022Q4

REPORT INFORMATION
  Report Type: Spontaneous
  Country: US (occurrence: US)
  Receive Date: 20221021
  Receipt Date: 20221021
  Transmission Date: 20230113
  Serious: No
  Sender: FDA-Public Use
  Company Number: US-GSKCCFUS-Case-01528840_AE-86671

PATIENT
  Sex: Female

DRUGS (1)
  1. ANORO ELLIPTA [Suspect]
     Active Substance: UMECLIDINIUM BROMIDE\VILANTEROL TRIFENATATE
     Indication: Product used for unknown indication
     Dosage: 1 DF, QD 62.5/25
     Route: 055
     Dates: start: 2022

REACTIONS (2)
  - Dysphonia [Not Recovered/Not Resolved]
  - Sensation of foreign body [Not Recovered/Not Resolved]

NARRATIVE: CASE EVENT DATE: 20220101
